FAERS Safety Report 7480895-8 (Version None)
Quarter: 2011Q2

REPORT INFORMATION
  Report Type: 
  Country: None (occurrence: None)
  Receive Date: 20110512
  Receipt Date: 20110512
  Transmission Date: 20111010
  Serious: Yes (Hospitalization, Other)
  Sender: FDA-Public Use
  Company Number: None

PATIENT
  Sex: Female
  Weight: 58.0604 kg

DRUGS (3)
  1. ALLERGAN (JUVEDERM ULTRA) [Suspect]
     Indication: PARALYSIS
     Dates: start: 20101214
  2. ALLERGAN (JUVEDERM ULTRA) [Suspect]
     Indication: FACIAL PAIN
     Dates: start: 20101214
  3. ALLERGAN (JUVEDERM ULTRA) [Suspect]
     Indication: VISION BLURRED
     Dates: start: 20101214

REACTIONS (13)
  - NEURALGIA [None]
  - NIGHTMARE [None]
  - DEFORMITY [None]
  - SCAR [None]
  - EYE SWELLING [None]
  - VISION BLURRED [None]
  - PRODUCT QUALITY ISSUE [None]
  - FEAR [None]
  - UNEVALUABLE EVENT [None]
  - FACIAL PAIN [None]
  - EMOTIONAL DISORDER [None]
  - INJECTION SITE DISCOLOURATION [None]
  - WRONG TECHNIQUE IN DRUG USAGE PROCESS [None]
